FAERS Safety Report 23080246 (Version 1)
Quarter: 2023Q4

REPORT INFORMATION
  Report Type: Spontaneous
  Country: US (occurrence: None)
  Receive Date: 20231018
  Receipt Date: 20231018
  Transmission Date: 20240110
  Serious: Yes (unspecified)
  Sender: FDA-Public Use
  Company Number: None

PATIENT
  Age: 63 Year
  Sex: Female
  Weight: 71.9 kg

DRUGS (5)
  1. TAXOL [Suspect]
     Active Substance: PACLITAXEL
     Indication: Breast cancer
     Dosage: OTHER FREQUENCY : ONCE;?
     Route: 042
     Dates: start: 20231013, end: 20231013
  2. DEXAMETHASONE [Concomitant]
     Active Substance: DEXAMETHASONE
     Dates: start: 20231013, end: 20231013
  3. DIPHENHYDRAMINE [Concomitant]
     Active Substance: DIPHENHYDRAMINE
     Dates: start: 20231013, end: 20231013
  4. FAMOTIDINE [Concomitant]
     Active Substance: FAMOTIDINE
     Dates: start: 20231013, end: 20231013
  5. ONDANSETRON [Concomitant]
     Active Substance: ONDANSETRON
     Dates: start: 20231013, end: 20231013

REACTIONS (9)
  - Infusion related reaction [None]
  - Flushing [None]
  - Erythema [None]
  - Chest discomfort [None]
  - Pulse abnormal [None]
  - Blood pressure decreased [None]
  - Lethargy [None]
  - Urinary incontinence [None]
  - Unresponsive to stimuli [None]

NARRATIVE: CASE EVENT DATE: 20231013
